FAERS Safety Report 13499551 (Version 1)
Quarter: 2017Q2

REPORT INFORMATION
  Report Type: Spontaneous
  Country: US (occurrence: US)
  Receive Date: 20170501
  Receipt Date: 20170501
  Transmission Date: 20170830
  Serious: No
  Sender: FDA-Public Use
  Company Number: US-009507513-1704USA006475

PATIENT
  Sex: Male

DRUGS (1)
  1. DULERA [Suspect]
     Active Substance: FORMOTEROL FUMARATE DIHYDRATE\MOMETASONE FUROATE
     Dosage: 1 PUFF, ONCE DAILY
     Route: 055

REACTIONS (5)
  - No adverse event [Unknown]
  - Underdose [Unknown]
  - Drug dose omission [Unknown]
  - Incorrect dose administered by device [Unknown]
  - Product container issue [Unknown]
